FAERS Safety Report 23238999 (Version 1)
Quarter: 2023Q4

REPORT INFORMATION
  Report Type: Spontaneous
  Country: CN (occurrence: CN)
  Receive Date: 20231129
  Receipt Date: 20231129
  Transmission Date: 20240110
  Serious: Yes (Hospitalization, Other)
  Sender: FDA-Public Use
  Company Number: CN-002147023-NVSC2023CN249321

PATIENT
  Age: 88 Year
  Sex: Male
  Weight: 57 kg

DRUGS (2)
  1. FLUVASTATIN SODIUM [Suspect]
     Active Substance: FLUVASTATIN SODIUM
     Indication: Lipids abnormal
     Dosage: 80 MG, QD
     Route: 048
     Dates: start: 20231018, end: 20231109
  2. FLUVASTATIN SODIUM [Suspect]
     Active Substance: FLUVASTATIN SODIUM
     Indication: Arteriosclerosis

REACTIONS (3)
  - Chest discomfort [Unknown]
  - Dizziness [Unknown]
  - Hepatic function abnormal [Recovered/Resolved]

NARRATIVE: CASE EVENT DATE: 20231109
